FAERS Safety Report 8261741-1 (Version None)
Quarter: 2012Q1

REPORT INFORMATION
  Report Type: 
  Country: None (occurrence: None)
  Receive Date: 20120327
  Receipt Date: 20100506
  Transmission Date: 20120608
  Serious: Yes (Other)
  Sender: FDA-Public Use
  Company Number: PHEH2010US02350

PATIENT
  Age: 54 Year
  Sex: Female

DRUGS (5)
  1. GLEEVEC [Suspect]
     Indication: CHRONIC MYELOID LEUKAEMIA
     Dosage: 400 MG DAILY, ORAL, 300 MG DAILY, ORAL, 200 MG DAILY, ORAL
     Route: 048
     Dates: start: 20091201, end: 20100201
  2. GLEEVEC [Suspect]
     Indication: CHRONIC MYELOID LEUKAEMIA
     Dosage: 400 MG DAILY, ORAL, 300 MG DAILY, ORAL, 200 MG DAILY, ORAL
     Route: 048
     Dates: start: 20100301
  3. GLEEVEC [Suspect]
     Indication: CHRONIC MYELOID LEUKAEMIA
     Dosage: 400 MG DAILY, ORAL, 300 MG DAILY, ORAL, 200 MG DAILY, ORAL
     Route: 048
     Dates: start: 20090701, end: 20091101
  4. INSULIN (INSULIN) [Concomitant]
  5. GLUCOPHAGE [Concomitant]

REACTIONS (4)
  - BONE PAIN [None]
  - WEIGHT INCREASED [None]
  - NEUTROPENIA [None]
  - ARTHRALGIA [None]
